FAERS Safety Report 5307283-4 (Version None)
Quarter: 2007Q2

REPORT INFORMATION
  Report Type: 
  Country: None (occurrence: None)
  Receive Date: 20070423
  Receipt Date: 20070423
  Transmission Date: 20071010
  Serious: Yes (Life-Threatening, Hospitalization)
  Sender: FDA-Public Use
  Company Number: None

PATIENT
  Sex: Male
  Weight: 101 kg

DRUGS (5)
  1. FLUOXETINE [Suspect]
     Indication: DEPRESSION
     Dosage: 60MG QAM (PO)
  2. NORTRIPTYLINE HCL [Suspect]
     Indication: NEURALGIA
     Dosage: 25MG QID AC + HS (PO)
     Route: 048
  3. NORTRIPTYLINE HCL [Suspect]
     Indication: TREMOR
     Dosage: 25MG QID AC + HS (PO)
     Route: 048
  4. TRAZODONE HCL [Concomitant]
  5. BENZTROPINE [Concomitant]

REACTIONS (7)
  - DRUG TOXICITY [None]
  - FALL [None]
  - HIP FRACTURE [None]
  - MENTAL STATUS CHANGES [None]
  - SEROTONIN SYNDROME [None]
  - TARDIVE DYSKINESIA [None]
  - TREMOR [None]
